FAERS Safety Report 8101720-8 (Version None)
Quarter: 2012Q1

REPORT INFORMATION
  Report Type: 
  Country: None (occurrence: None)
  Receive Date: 20120131
  Receipt Date: 20120125
  Transmission Date: 20120608
  Serious: Yes (Hospitalization)
  Sender: FDA-Public Use
  Company Number: IT-PFIZER INC-2010082848

PATIENT
  Age: 86 Year
  Sex: Female

DRUGS (5)
  1. TENORETIC 100 [Suspect]
     Indication: HYPERTENSION
     Dosage: [ATENOLOL 100 MG] / [CHLORTHALIDONE 25 MG], 1X/DAY
     Route: 048
     Dates: start: 20100502, end: 20100619
  2. SIMVASTATIN [Concomitant]
     Dosage: UNK
  3. RAMIPRIL [Suspect]
     Indication: HYPERTENSION
     Dosage: 80 MG, 1X/DAY
     Route: 048
     Dates: start: 20100502
  4. CARDURA [Suspect]
     Indication: HYPERTENSION
     Dosage: 2 MG, 1X/DAY
     Route: 048
     Dates: start: 20100618, end: 20100619
  5. VERAPAMIL [Suspect]
     Indication: HYPERTENSION
     Dosage: 80 MG, 1X/DAY
     Route: 048
     Dates: start: 20100502

REACTIONS (6)
  - SYNCOPE [None]
  - SUBDURAL HAEMATOMA [None]
  - ORTHOSTATIC HYPOTENSION [None]
  - EXTRADURAL HAEMATOMA [None]
  - SKULL FRACTURE [None]
  - HEAD INJURY [None]
